FAERS Safety Report 6541592-6 (Version None)
Quarter: 2010Q1

REPORT INFORMATION
  Report Type: 
  Country: None (occurrence: None)
  Receive Date: 20100119
  Receipt Date: 20100114
  Transmission Date: 20100710
  Serious: Yes (Death)
  Sender: FDA-Public Use
  Company Number: US-ROCHE-679670

PATIENT
  Sex: Male

DRUGS (1)
  1. VALGANCICLOVIR HCL [Suspect]
     Indication: DRUG USE FOR UNKNOWN INDICATION
     Route: 065
     Dates: start: 20091113

REACTIONS (1)
  - CARDIAC ARREST [None]
